FAERS Safety Report 9173609 (Version 1)
Quarter: 2013Q1

REPORT INFORMATION
  Report Type: Spontaneous
  Country: DE (occurrence: None)
  Receive Date: 20130131
  Receipt Date: 20130131
  Transmission Date: 20140127
  Serious: Yes (Other)
  Sender: FDA-Public Use
  Company Number: 2013034570

PATIENT
  Age: 74 Year
  Sex: Male

DRUGS (2)
  1. PRIVIGEN (IMMUNE GLOBULIN INTRAVENOUS (HUMAN) 10% LIQUID) [Suspect]
     Indication: CHRONIC INFLAMMATORY DEMYELINATING POLYRADICULONEUROPATHY
     Dosage: 300 ML QD, DURATION: 4 HOURS, NI, NI
     Route: 042
     Dates: start: 20121015, end: 20121019
  2. CONCOR /01632701/ (CONCOR /01632701/) [Concomitant]

REACTIONS (2)
  - Rash maculo-papular [None]
  - Rash generalised [None]
